FAERS Safety Report 6706455-1 (Version None)
Quarter: 2010Q2

REPORT INFORMATION
  Report Type: 
  Country: None (occurrence: None)
  Receive Date: 20100423
  Receipt Date: 20091218
  Transmission Date: 20101027
  Serious: No
  Sender: FDA-Public Use
  Company Number: ALL1-2009-04117

PATIENT
  Age: 16 Year
  Sex: Male

DRUGS (3)
  1. VYVANSE [Suspect]
     Indication: ATTENTION DEFICIT/HYPERACTIVITY DISORDER
     Dosage: 70 MG, 1X/DAY:QD, ORAL
     Route: 048
     Dates: start: 20090201
  2. RISPERDAL [Concomitant]
  3. TOFRANIL [Concomitant]

REACTIONS (4)
  - COLITIS [None]
  - DIARRHOEA [None]
  - IRRITABLE BOWEL SYNDROME [None]
  - OFF LABEL USE [None]
